FAERS Safety Report 18660669 (Version 16)
Quarter: 2024Q4

REPORT INFORMATION
  Report Type: Report from Study
  Country: US (occurrence: US)
  Receive Date: 20201224
  Receipt Date: 20241212
  Transmission Date: 20250115
  Serious: Yes (Hospitalization, Other)
  Sender: TAKEDA
  Company Number: US-TAKEDA-2020TUS059085

PATIENT
  Age: 52 Year
  Sex: Female

DRUGS (11)
  1. TEDUGLUTIDE [Suspect]
     Active Substance: TEDUGLUTIDE
     Indication: Short-bowel syndrome
     Dosage: 1.103 MILLIGRAM, QD
     Dates: start: 20201116
  2. TEDUGLUTIDE [Suspect]
     Active Substance: TEDUGLUTIDE
     Dosage: 1.103 MILLIGRAM, QOD
     Dates: start: 202011
  3. TEDUGLUTIDE [Suspect]
     Active Substance: TEDUGLUTIDE
     Dosage: 1.103 MILLIGRAM, QD
     Dates: start: 202011
  4. TEDUGLUTIDE [Suspect]
     Active Substance: TEDUGLUTIDE
     Dosage: 2.175 MILLIGRAM, QD
     Dates: start: 20201117, end: 20201201
  5. TEDUGLUTIDE [Suspect]
     Active Substance: TEDUGLUTIDE
     Dosage: 1.102 MILLIGRAM, QD
     Dates: start: 20201118
  6. TEDUGLUTIDE [Suspect]
     Active Substance: TEDUGLUTIDE
     Dosage: 2.676 MILLIGRAM, QD
     Dates: start: 20220819
  7. TEDUGLUTIDE [Suspect]
     Active Substance: TEDUGLUTIDE
     Dosage: 0.13 MILLILITER, QD
  8. TEDUGLUTIDE [Suspect]
     Active Substance: TEDUGLUTIDE
     Dosage: 0.13 MILLILITER, QD
     Dates: start: 20240907, end: 20240910
  9. TEDUGLUTIDE [Suspect]
     Active Substance: TEDUGLUTIDE
     Dosage: 0.06 MILLILITER, QD
  10. TEDUGLUTIDE [Suspect]
     Active Substance: TEDUGLUTIDE
     Dosage: 0.13 MILLILITER, QD
  11. TEDUGLUTIDE [Suspect]
     Active Substance: TEDUGLUTIDE
     Dosage: 0.08 MILLIGRAM, 2/WEEK

REACTIONS (20)
  - Constipation [Unknown]
  - Pyrexia [Unknown]
  - Stoma complication [Unknown]
  - Stoma site haemorrhage [Unknown]
  - Stomach mass [Unknown]
  - Device related thrombosis [Unknown]
  - Pain [Unknown]
  - Dehydration [Unknown]
  - Stoma obstruction [Unknown]
  - Complication associated with device [Unknown]
  - Weight decreased [Unknown]
  - Stoma site pain [Unknown]
  - Stoma site induration [Unknown]
  - Drug ineffective [Unknown]
  - Weight increased [Unknown]
  - Product dose omission issue [Unknown]
  - Off label use [Unknown]
  - Incorrect dose administered [Unknown]
  - Decreased appetite [Unknown]
  - Nausea [Unknown]

NARRATIVE: CASE EVENT DATE: 20201201
